FAERS Safety Report 10935866 (Version 1)
Quarter: 2015Q1

REPORT INFORMATION
  Report Type: Spontaneous
  Country: IT (occurrence: IT)
  Receive Date: 20150320
  Receipt Date: 20150320
  Transmission Date: 20150721
  Serious: Yes (Hospitalization)
  Sender: FDA-Public Use
  Company Number: IT-ROCHE-1554376

PATIENT
  Age: 69 Year
  Sex: Male

DRUGS (7)
  1. MINITRAN (ITALY) [Concomitant]
     Route: 065
  2. SEQUACOR [Concomitant]
     Active Substance: BISOPROLOL
  3. ATORVASTATIN [Concomitant]
     Active Substance: ATORVASTATIN
  4. CARDIOASPIRIN [Concomitant]
     Active Substance: ASPIRIN
  5. LUCENTIS [Suspect]
     Active Substance: RANIBIZUMAB
     Indication: AGE-RELATED MACULAR DEGENERATION
     Dosage: IN LEFT EYE?10 MG/ML
     Route: 050
     Dates: start: 20150226, end: 20150226
  6. ESIDREX [Concomitant]
     Active Substance: HYDROCHLOROTHIAZIDE
  7. KARVEA [Concomitant]
     Active Substance: IRBESARTAN

REACTIONS (1)
  - Ischaemic stroke [Recovered/Resolved with Sequelae]

NARRATIVE: CASE EVENT DATE: 20150227
